FAERS Safety Report 9311617 (Version 1)
Quarter: 2013Q2

REPORT INFORMATION
  Report Type: Spontaneous
  Country: US (occurrence: US)
  Receive Date: 20130528
  Receipt Date: 20130528
  Transmission Date: 20140414
  Serious: No
  Sender: FDA-Public Use
  Company Number: US-ABBOTT-12P-163-0978921-00

PATIENT
  Sex: Female
  Weight: 81.72 kg

DRUGS (14)
  1. ZEMPLAR [Suspect]
     Indication: PRODUCT USED FOR UNKNOWN INDICATION
     Dosage: 4 MCG DAILY
  2. LYRICA [Suspect]
     Indication: PARAESTHESIA
     Dosage: 2 CAPSULES IN THE AFTERNOON AND 2 CAPSULES AT NIGHT
  3. LYRICA [Suspect]
     Indication: FIBROMYALGIA
  4. LYRICA [Suspect]
     Indication: PAIN IN EXTREMITY
  5. LYRICA [Suspect]
     Indication: PARAESTHESIA
  6. NOVOLOG [Suspect]
     Indication: DIABETES MELLITUS
  7. SYMBICORT [Suspect]
     Indication: PULMONARY OEDEMA
  8. PROAIR HFA [Suspect]
     Indication: PULMONARY OEDEMA
  9. CADUET [Suspect]
     Indication: BLOOD PRESSURE ABNORMAL
     Dosage: 5/40MG DAILY
  10. CADUET [Suspect]
     Indication: CARDIAC DISORDER
  11. LASIX [Suspect]
     Indication: FLUID RETENTION
     Dosage: 20MG DAILY
  12. POTASSIUM [Suspect]
     Indication: MINERAL SUPPLEMENTATION
     Dosage: 10MEQ DAILY
  13. ASPIRIN [Suspect]
     Indication: ANTICOAGULANT THERAPY
     Dosage: DAILY
  14. PREDNISONE [Suspect]
     Indication: PULMONARY OEDEMA
     Dosage: 5 MG DAILY

REACTIONS (11)
  - Pulmonary oedema [Unknown]
  - Pulmonary fibrosis [Unknown]
  - Abasia [Unknown]
  - Gait disturbance [Unknown]
  - Feeling hot [Unknown]
  - Muscle spasms [Unknown]
  - Pruritus [Unknown]
  - Drug ineffective [Unknown]
  - Weight increased [Unknown]
  - Muscle spasms [Unknown]
  - Oedema peripheral [Unknown]
